FAERS Safety Report 22219750 (Version 4)
Quarter: 2023Q2

REPORT INFORMATION
  Report Type: Spontaneous
  Country: FR (occurrence: FR)
  Receive Date: 20230417
  Receipt Date: 20230526
  Transmission Date: 20230722
  Serious: Yes (Life-Threatening, Hospitalization, Other)
  Sender: FDA-Public Use
  Company Number: None

PATIENT
  Age: 55 Year
  Sex: Male

DRUGS (34)
  1. MORPHINE SULFATE [Suspect]
     Active Substance: MORPHINE SULFATE
     Indication: Pain
     Dosage: 30 MILLIGRAM, AT INTERVAL OF 0.5 DAYS
     Route: 048
     Dates: start: 20230210, end: 20230218
  2. METRONIDAZOLE [Suspect]
     Active Substance: METRONIDAZOLE
     Indication: Bacterial infection
     Dosage: 500 MG MATIN, MIDI ET SOIR
     Route: 048
     Dates: start: 20230209, end: 20230303
  3. METRONIDAZOLE [Suspect]
     Active Substance: METRONIDAZOLE
     Indication: Bacterial infection
  4. RITUXIMAB [Suspect]
     Active Substance: RITUXIMAB
     Indication: Diffuse large B-cell lymphoma
     Dosage: 1 COURSE
     Route: 065
     Dates: start: 20221227
  5. RITUXIMAB [Suspect]
     Active Substance: RITUXIMAB
     Indication: Diffuse large B-cell lymphoma
  6. PANTOPRAZOLE [Suspect]
     Active Substance: PANTOPRAZOLE
     Indication: Constipation
     Dosage: 20 MILLIGRAM
     Route: 048
     Dates: start: 20230106
  7. PANTOPRAZOLE [Suspect]
     Active Substance: PANTOPRAZOLE
     Indication: Gastritis prophylaxis
  8. NALOXEGOL OXALATE [Suspect]
     Active Substance: NALOXEGOL OXALATE
     Indication: Constipation
     Dosage: 25 MILLIGRAM, PRN (IF NECESSARY)
     Route: 048
     Dates: start: 20230211
  9. VALACYCLOVIR HYDROCHLORIDE [Suspect]
     Active Substance: VALACYCLOVIR HYDROCHLORIDE
     Indication: Bacterial infection
     Dosage: 500MG MATIN ET SOIR
     Route: 048
     Dates: start: 20230106
  10. CYCLOPHOSPHAMIDE [Suspect]
     Active Substance: CYCLOPHOSPHAMIDE
     Indication: Diffuse large B-cell lymphoma
     Dosage: 1 CURE
     Route: 065
     Dates: start: 20221227
  11. CYCLOPHOSPHAMIDE [Suspect]
     Active Substance: CYCLOPHOSPHAMIDE
     Indication: Diffuse large B-cell lymphoma
  12. CEFTRIAXONE [Suspect]
     Active Substance: CEFTRIAXONE
     Indication: Bacterial infection
     Dosage: 2 GRAM,QD1G MORNING AND EVENING
     Route: 048
     Dates: start: 20230209
  13. DOXORUBICIN [Suspect]
     Active Substance: DOXORUBICIN
     Indication: Diffuse large B-cell lymphoma
     Dosage: 1 CURE
     Route: 065
     Dates: start: 20221227
  14. DOXORUBICIN [Suspect]
     Active Substance: DOXORUBICIN
     Indication: Diffuse large B-cell lymphoma
  15. CASPOFUNGIN [Suspect]
     Active Substance: CASPOFUNGIN
     Indication: Fungal infection
     Dosage: 70 MILLIGRAM
     Route: 042
     Dates: start: 20230126
  16. LEUCOVORIN CALCIUM [Suspect]
     Active Substance: LEUCOVORIN CALCIUM
     Indication: Bacterial infection
     Dosage: 2 DF, 0.5 WEEK (A TAB EVERY MONDAY AND THURSDAY)
     Route: 048
     Dates: start: 20230102
  17. LEUCOVORIN CALCIUM [Suspect]
     Active Substance: LEUCOVORIN CALCIUM
     Indication: Prophylaxis
  18. BACTRIM [Suspect]
     Active Substance: SULFAMETHOXAZOLE\TRIMETHOPRIM
     Indication: Bacterial infection
     Dosage: 400 MILLIGRAM, QD (1 DF, 1 TAB IN THE MORNING)
     Route: 048
     Dates: start: 20230106, end: 20230303
  19. BACTRIM [Suspect]
     Active Substance: SULFAMETHOXAZOLE\TRIMETHOPRIM
     Dosage: 1 TAB IN THE MORNING (400 MG)
     Route: 048
     Dates: start: 20230106, end: 20230303
  20. ACUPAN [Suspect]
     Active Substance: NEFOPAM HYDROCHLORIDE
     Indication: Pain
     Dosage: ONE AMPOULE EVERY FOUR HOURS IF PAIN
     Route: 048
     Dates: start: 20230106, end: 20230302
  21. ALPRAZOLAM [Suspect]
     Active Substance: ALPRAZOLAM
     Indication: Anxiety
     Dosage: 0.25 MILLIGRAM
     Route: 048
     Dates: start: 20230106, end: 20230209
  22. ALPRAZOLAM [Suspect]
     Active Substance: ALPRAZOLAM
     Dosage: 1 TAB 0.25MG IF ANXIETY
     Route: 048
     Dates: start: 20230106, end: 20230209
  23. CIPROFLOXACIN [Suspect]
     Active Substance: CIPROFLOXACIN
     Indication: Bacterial infection
     Dosage: UNK
     Route: 065
     Dates: start: 20230203, end: 20230208
  24. AMITRIPTYLINE HYDROCHLORIDE [Suspect]
     Active Substance: AMITRIPTYLINE HYDROCHLORIDE
     Indication: Pain
     Dosage: 35 GTT DROPS, 5 DROP MOR, 10 DROP MIDDAY AND EVEN
     Route: 048
     Dates: start: 20221210
  25. AMITRIPTYLINE HYDROCHLORIDE [Suspect]
     Active Substance: AMITRIPTYLINE HYDROCHLORIDE
     Dosage: 5 GOUTTES MATIN ET 10 GOUTTES MIDI ET SOIR
     Route: 048
     Dates: start: 20221210
  26. VINCRISTINE [Suspect]
     Active Substance: VINCRISTINE
     Indication: Diffuse large B-cell lymphoma
     Dosage: 1 RACE
     Route: 065
     Dates: start: 20221227
  27. ARANESP [Suspect]
     Active Substance: DARBEPOETIN ALFA
     Indication: Anaemia
     Dosage: 1 ADMINISTRATION PAR SEMAINE
     Route: 058
     Dates: start: 20230213
  28. DAPTOMYCIN [Suspect]
     Active Substance: DAPTOMYCIN
     Indication: Bacterial infection
     Dosage: 1 GRAM
     Route: 042
     Dates: start: 20230211, end: 20230306
  29. ACETAMINOPHEN [Suspect]
     Active Substance: ACETAMINOPHEN
     Indication: Pain
     Dosage: 1 DF, Q6H (1 TABLET Q6H, MAXIMUM 3 TABLETS/D)
     Route: 048
     Dates: start: 20230211
  30. ACETAMINOPHEN [Suspect]
     Active Substance: ACETAMINOPHEN
     Dosage: 1 CP TOUTES LES 6 HEURES, MAXIMUM 3 CP/J
     Route: 048
     Dates: start: 20230211
  31. LOVENOX [Suspect]
     Active Substance: ENOXAPARIN SODIUM
     Indication: Constipation
     Dosage: 4000 INTERNATIONAL UNIT
     Route: 058
     Dates: start: 20230210
  32. LOVENOX [Suspect]
     Active Substance: ENOXAPARIN SODIUM
     Indication: Prophylaxis
  33. CILASTATIN SODIUM\IMIPENEM [Suspect]
     Active Substance: CILASTATIN SODIUM\IMIPENEM
     Indication: Bacterial infection
     Dosage: 800 MILLIGRAM, QD, 500MG/500MG
     Route: 042
     Dates: start: 20230114, end: 20230208
  34. SKENAN [Suspect]
     Active Substance: MORPHINE SULFATE
     Indication: Pain
     Dosage: 30 MG BID (TWICE A DAY) (1 TAB SKENAN LP30MG EVERY 12 HOURS)
     Dates: start: 20230210, end: 20230218

REACTIONS (1)
  - Agranulocytosis [Recovered/Resolved]

NARRATIVE: CASE EVENT DATE: 20230201
